FAERS Safety Report 8614987-4 (Version None)
Quarter: 2012Q3

REPORT INFORMATION
  Report Type: 
  Country: None (occurrence: None)
  Receive Date: 20120814
  Receipt Date: 20120814
  Transmission Date: 20120928
  Serious: Yes (Hospitalization)
  Sender: FDA-Public Use
  Company Number: None

PATIENT
  Age: 67 Year
  Sex: Male
  Weight: 57.9 kg

DRUGS (1)
  1. ADENOSINE [Suspect]
     Indication: ANGIOGRAM
     Dosage: 140 MCG OTHER IV
     Route: 042
     Dates: start: 20120516, end: 20120516

REACTIONS (5)
  - CHRONIC OBSTRUCTIVE PULMONARY DISEASE [None]
  - BRONCHOSPASM [None]
  - RESPIRATORY DISTRESS [None]
  - CONDITION AGGRAVATED [None]
  - CARDIAC FAILURE CONGESTIVE [None]
